FAERS Safety Report 24583574 (Version 3)
Quarter: 2024Q4

REPORT INFORMATION
  Report Type: Spontaneous
  Country: PT (occurrence: PT)
  Receive Date: 20241106
  Receipt Date: 20241220
  Transmission Date: 20250114
  Serious: Yes (Other)
  Sender: NOVARTIS
  Company Number: None

PATIENT
  Age: 23 Year
  Sex: Female
  Weight: 70 kg

DRUGS (2)
  1. COSENTYX [Suspect]
     Active Substance: SECUKINUMAB
     Indication: Psoriasis
     Dosage: 300 MG, 28D
     Route: 058
     Dates: start: 20230522
  2. DIENOGEST + ETHINYLESTRADIOL [Concomitant]
     Indication: Product used for unknown indication
     Dosage: UNK (2 MG + 0.03 MG)
     Route: 048

REACTIONS (1)
  - Graves^ disease [Not Recovered/Not Resolved]

NARRATIVE: CASE EVENT DATE: 20241001
